FAERS Safety Report 25797515 (Version 4)
Quarter: 2025Q4

REPORT INFORMATION
  Report Type: Spontaneous
  Country: US (occurrence: US)
  Receive Date: 20250912
  Receipt Date: 20251126
  Transmission Date: 20260118
  Serious: Yes (Hospitalization, Other)
  Sender: BIOVITRUM
  Company Number: US-BIOVITRUM-2025-US-012282

PATIENT
  Age: 87 Year
  Sex: Female

DRUGS (20)
  1. VONJO [Suspect]
     Active Substance: PACRITINIB
     Indication: Myelofibrosis
     Dosage: TWICE DAILY
     Route: 048
     Dates: start: 20250812
  2. VONJO [Suspect]
     Active Substance: PACRITINIB
     Indication: Hypogammaglobulinaemia
  3. VITAMIN B COMPLEX [Concomitant]
     Active Substance: CYANOCOBALAMIN\DEXPANTHENOL\NIACINAMIDE\PYRIDOXINE HYDROCHLORIDE\RIBOFLAVIN 5^-PHOSPHATE SODIUM\THIA
     Indication: Product used for unknown indication
  4. BIG 100 (BIOTIN) [Concomitant]
     Indication: Product used for unknown indication
  5. BREZTRI AEROSPHERE INHALATION [Concomitant]
     Indication: Product used for unknown indication
  6. CALCIUM [Concomitant]
     Active Substance: CALCIUM
     Indication: Product used for unknown indication
  7. CANNABIDIOL [Concomitant]
     Active Substance: CANNABIDIOL
     Indication: Product used for unknown indication
  8. D3/CV D3 [Concomitant]
     Indication: Product used for unknown indication
  9. LAMOTRIGINE [Concomitant]
     Active Substance: LAMOTRIGINE
     Indication: Product used for unknown indication
  10. LORATADINE [Concomitant]
     Active Substance: LORATADINE
     Indication: Product used for unknown indication
  11. MULTIVITAMIN ADULT [Concomitant]
     Indication: Product used for unknown indication
  12. SIMVASTATIN [Concomitant]
     Active Substance: SIMVASTATIN
     Indication: Product used for unknown indication
  13. ZINC [Concomitant]
     Active Substance: ZINC
     Indication: Product used for unknown indication
  14. PRESERVISION AREDS 2/PRESERVISION AREDS [Concomitant]
     Indication: Product used for unknown indication
  15. CALCIUM ASCORBATE [Concomitant]
     Active Substance: CALCIUM ASCORBATE
     Indication: Product used for unknown indication
  16. CVS D3 ORAL CAPSULE/ EQL VITAMIN D3 [Concomitant]
     Indication: Product used for unknown indication
  17. ZINC GLUCONATE [Concomitant]
     Active Substance: ZINC GLUCONATE
     Indication: Product used for unknown indication
  18. EQL VITAMIN D3/ VITAMIN D3 [Concomitant]
     Indication: Product used for unknown indication
  19. PROTONIX [Concomitant]
     Active Substance: PANTOPRAZOLE SODIUM
     Indication: Product used for unknown indication
  20. MIRALAX [Concomitant]
     Active Substance: POLYETHYLENE GLYCOL 3350
     Indication: Product used for unknown indication

REACTIONS (12)
  - Neuropathy peripheral [Unknown]
  - Insomnia [Unknown]
  - Peripheral swelling [Unknown]
  - Contusion [Unknown]
  - Diarrhoea [Not Recovered/Not Resolved]
  - Blood disorder [Unknown]
  - Platelet count decreased [Unknown]
  - White blood cell count increased [Unknown]
  - Product dose omission issue [Unknown]
  - Off label use [Recovered/Resolved]
  - Haematemesis [Unknown]
  - Fall [Unknown]

NARRATIVE: CASE EVENT DATE: 20250812
